FAERS Safety Report 5270348-X (Version None)
Quarter: 2007Q1

REPORT INFORMATION
  Report Type: 
  Country: None (occurrence: None)
  Receive Date: 20070320
  Receipt Date: 20070308
  Transmission Date: 20070707
  Serious: Yes (Other)
  Sender: FDA-Public Use
  Company Number: DE-PFIZER INC-2006156165

PATIENT
  Sex: Female
  Weight: 55 kg

DRUGS (2)
  1. NEURONTIN [Suspect]
     Indication: EPILEPSY
     Dosage: DAILY DOSE:2000MG
     Route: 048
  2. METOPROLOL SUCCINATE [Concomitant]

REACTIONS (1)
  - HYPERKALAEMIA [None]
